FAERS Safety Report 5386755-0 (Version None)
Quarter: 2007Q3

REPORT INFORMATION
  Report Type: 
  Country: None (occurrence: None)
  Receive Date: 20070713
  Receipt Date: 20070703
  Transmission Date: 20080115
  Serious: Yes (Other)
  Sender: FDA-Public Use
  Company Number: US-PFIZER INC-2006076019

PATIENT
  Age: 89 Year
  Sex: Female
  Weight: 68.2 kg

DRUGS (24)
  1. NORVASC [Suspect]
     Indication: DRUG USE FOR UNKNOWN INDICATION
     Dosage: TEXT:UNKNOWN-FREQ:UNKNOWN
     Route: 065
  2. DELTASONE [Suspect]
     Indication: DRUG USE FOR UNKNOWN INDICATION
     Dosage: TEXT:UNKNOWN-FREQ:UNKNOWN
     Route: 065
  3. ALDACTONE [Suspect]
     Indication: DRUG USE FOR UNKNOWN INDICATION
     Dosage: TEXT:UNKNOWN-FREQ:UNKNOWN
     Route: 065
  4. BEXTRA [Suspect]
     Indication: DRUG USE FOR UNKNOWN INDICATION
     Dosage: TEXT:UNKNOWN-FREQ:UNKNOWN
     Route: 065
  5. REMERON [Suspect]
     Indication: DEPRESSION
     Route: 048
  6. EFFEXOR XR [Suspect]
     Indication: DEPRESSION
     Dosage: DAILY DOSE:225MG-FREQ:UNKNOWN
     Route: 048
  7. ADVAIR DISKUS 100/50 [Suspect]
     Indication: DRUG USE FOR UNKNOWN INDICATION
     Dosage: TEXT:UNKNOWN-FREQ:UNKNOWN
     Route: 065
  8. ULTRAM [Suspect]
     Indication: DRUG USE FOR UNKNOWN INDICATION
     Dosage: TEXT:UNKNOWN-FREQ:UNKNOWN
     Route: 065
  9. TYLENOL [Suspect]
     Indication: DRUG USE FOR UNKNOWN INDICATION
     Dosage: TEXT:UNKNOWN-FREQ:UNKNOWN
     Route: 065
  10. DOCUSATE SODIUM [Suspect]
     Indication: DRUG USE FOR UNKNOWN INDICATION
     Dosage: TEXT:UNKNOWN-FREQ:UNKNOWN
     Route: 065
  11. ASPIRIN [Suspect]
     Indication: DRUG USE FOR UNKNOWN INDICATION
     Dosage: TEXT:UNKNOWN-FREQ:UNKNOWN
     Route: 065
  12. PEPCID [Suspect]
     Indication: DRUG USE FOR UNKNOWN INDICATION
     Dosage: TEXT:UNKNOWN-FREQ:UNKNOWN
     Route: 065
  13. LOVENOX [Suspect]
     Indication: DRUG USE FOR UNKNOWN INDICATION
     Dosage: TEXT:UNKNOWN-FREQ:UNKNOWN
     Route: 065
  14. ANCEF [Suspect]
     Indication: DRUG USE FOR UNKNOWN INDICATION
     Dosage: TEXT:UNKNOWN-FREQ:UNKNOWN
     Route: 065
  15. TRAZODONE HCL [Suspect]
     Indication: DRUG USE FOR UNKNOWN INDICATION
     Dosage: TEXT:UNKNOWN-FREQ:UNKNOWN
     Route: 065
  16. LASIX [Suspect]
     Indication: DRUG USE FOR UNKNOWN INDICATION
     Dosage: TEXT:UNKNOWN-FREQ:UNKNOWN
     Route: 065
  17. KEFLEX [Suspect]
     Indication: DRUG USE FOR UNKNOWN INDICATION
     Dosage: TEXT:UNKNOWN-FREQ:UNKNOWN
     Route: 065
  18. SLO-MAG [Suspect]
     Indication: DRUG USE FOR UNKNOWN INDICATION
     Dosage: TEXT:UNKNOWN-FREQ:UNKNOWN
     Route: 065
  19. PRO-BANTHINE [Suspect]
     Indication: DRUG USE FOR UNKNOWN INDICATION
     Dosage: TEXT:UNKNOWN-FREQ:UNKNOWN
     Route: 065
  20. COREG [Suspect]
     Indication: DRUG USE FOR UNKNOWN INDICATION
     Dosage: TEXT:UNKNOWN-FREQ:UNKNOWN
     Route: 065
  21. COZAAR [Suspect]
     Indication: DRUG USE FOR UNKNOWN INDICATION
     Dosage: TEXT:UNKNOWN-FREQ:UNKNOWN
     Route: 065
  22. DARVOCET [Suspect]
     Indication: DRUG USE FOR UNKNOWN INDICATION
     Dosage: TEXT:UNKNOWN-FREQ:UNKNOWN
     Route: 065
  23. DUONEB [Suspect]
     Indication: DRUG USE FOR UNKNOWN INDICATION
     Dosage: TEXT:UNKNOWN-FREQ:UNKNOWN
     Route: 065
  24. BUCINDOLOL HYDROCHLORIDE [Suspect]
     Indication: DRUG USE FOR UNKNOWN INDICATION
     Dosage: TEXT:UNKNOWN
     Route: 065

REACTIONS (3)
  - HIP FRACTURE [None]
  - HYPONATRAEMIA [None]
  - POST PROCEDURAL INFECTION [None]
